FAERS Safety Report 15688918 (Version 1)
Quarter: 2018Q4

REPORT INFORMATION
  Report Type: Spontaneous
  Country: US (occurrence: US)
  Receive Date: 20181121
  Receipt Date: 20181121
  Transmission Date: 20190205
  Serious: No
  Sender: FDA-Public Use
  Company Number: None

PATIENT
  Age: 41 Year
  Sex: Female
  Weight: 79.1 kg

DRUGS (17)
  1. ACETAMINOPEHN [Concomitant]
     Active Substance: ACETAMINOPHEN
  2. CALCIUM CARBONATE. [Concomitant]
     Active Substance: CALCIUM CARBONATE
  3. HYDROMORPHONE [Concomitant]
     Active Substance: HYDROMORPHONE
  4. LEUPROLIDE [Concomitant]
     Active Substance: LEUPROLIDE
  5. PROCHLORPERAZIN [Concomitant]
     Active Substance: PROCHLORPERAZINE
  6. VALACYCLOVIR [Concomitant]
     Active Substance: VALACYCLOVIR HYDROCHLORIDE
  7. ONCASPAR [Suspect]
     Active Substance: PEGASPARGASE
     Dates: end: 20180718
  8. ZOPICLONE [Concomitant]
     Active Substance: ZOPICLONE
  9. NYSTATIN LIQUID [Concomitant]
     Active Substance: NYSTATIN
  10. ONDANSETRON [Concomitant]
     Active Substance: ONDANSETRON
  11. LORAZEPAM. [Concomitant]
     Active Substance: LORAZEPAM
  12. PEG 3350 [Concomitant]
     Active Substance: POLYETHYLENE GLYCOL 3350
  13. SULFAMETHOXAZOLE/TRIMETHOPRIM [Concomitant]
     Active Substance: SULFAMETHOXAZOLE\TRIMETHOPRIM
  14. DIMENHYDRINATE. [Concomitant]
     Active Substance: DIMENHYDRINATE
  15. TINZAPARIN [Concomitant]
     Active Substance: TINZAPARIN
  16. METHOTREXATE. [Suspect]
     Active Substance: METHOTREXATE
     Dates: end: 20180916
  17. OLANZAPINE. [Concomitant]
     Active Substance: OLANZAPINE

REACTIONS (6)
  - Bacterial infection [None]
  - Body temperature increased [None]
  - Staphylococcal infection [None]
  - Malaise [None]
  - Blood culture positive [None]
  - Chills [None]

NARRATIVE: CASE EVENT DATE: 20180917
